FAERS Safety Report 23421846 (Version 2)
Quarter: 2024Q2

REPORT INFORMATION
  Report Type: Spontaneous
  Country: US (occurrence: US)
  Receive Date: 20240119
  Receipt Date: 20240423
  Transmission Date: 20240716
  Serious: Yes (Hospitalization, Other)
  Sender: FDA-Public Use
  Company Number: US-PFIZER INC-202400017544

PATIENT
  Age: 8 Year
  Sex: Male

DRUGS (2)
  1. OXBRYTA [Suspect]
     Active Substance: VOXELOTOR
     Dosage: PREPARE 3 TABLETS AS DIRECTED
     Route: 048
     Dates: start: 20220830
  2. OXBRYTA [Suspect]
     Active Substance: VOXELOTOR
     Dosage: PREPARE 3 TABLETS AS DIRECTED
     Route: 048
     Dates: start: 20221011

REACTIONS (2)
  - Sickle cell anaemia with crisis [Unknown]
  - Sleep apnoea syndrome [Unknown]
